FAERS Safety Report 9337741 (Version 1)
Quarter: 2013Q2

REPORT INFORMATION
  Report Type: Spontaneous
  Country: RU (occurrence: RU)
  Receive Date: 20130607
  Receipt Date: 20130607
  Transmission Date: 20140414
  Serious: Yes (Hospitalization)
  Sender: FDA-Public Use
  Company Number: RU-UCBSA-087331

PATIENT
  Age: 35 Year
  Sex: Male

DRUGS (1)
  1. VIMPAT [Suspect]
     Route: 048
     Dates: start: 2012, end: 201304

REACTIONS (2)
  - Rash generalised [Recovered/Resolved]
  - Pruritus [Recovered/Resolved]
